FAERS Safety Report 7415251-1 (Version None)
Quarter: 2011Q2

REPORT INFORMATION
  Report Type: 
  Country: None (occurrence: None)
  Receive Date: 20110414
  Receipt Date: 20110412
  Transmission Date: 20111010
  Serious: Yes (Death, Other)
  Sender: FDA-Public Use
  Company Number: PHHY2011BR30575

PATIENT
  Age: 93 Year
  Sex: Male

DRUGS (1)
  1. EXELON [Suspect]
     Dosage: 0.5 MG, BID

REACTIONS (1)
  - THROMBOSIS [None]
